FAERS Safety Report 8549488-5 (Version None)
Quarter: 2012Q3

REPORT INFORMATION
  Report Type: 
  Country: None (occurrence: None)
  Receive Date: 20120730
  Receipt Date: 20120717
  Transmission Date: 20120928
  Serious: Yes (Hospitalization)
  Sender: FDA-Public Use
  Company Number: JP-ROCHE-1091821

PATIENT
  Age: 70 Year
  Sex: Male

DRUGS (4)
  1. VINCRISTINE [Concomitant]
     Indication: LYMPHOMA
  2. DOXORUBICIN HYDROCHLORIDE [Concomitant]
     Indication: LYMPHOMA
  3. RITUXIMAB [Suspect]
     Indication: LYMPHOMA
  4. PREDNISOLONE [Concomitant]
     Indication: LYMPHOMA

REACTIONS (2)
  - ASPERGILLOSIS [None]
  - SMALL CELL LUNG CANCER STAGE UNSPECIFIED [None]
